FAERS Safety Report 23882100 (Version 1)
Quarter: 2024Q2

REPORT INFORMATION
  Report Type: Spontaneous
  Country: US (occurrence: US)
  Receive Date: 20240521
  Receipt Date: 20240521
  Transmission Date: 20240716
  Serious: Yes (Hospitalization, Other)
  Sender: FDA-Public Use
  Company Number: US-ABBVIE-5762560

PATIENT
  Age: 60 Year
  Sex: Female
  Weight: 67.131 kg

DRUGS (2)
  1. HUMIRA [Suspect]
     Active Substance: ADALIMUMAB
     Indication: Rheumatoid arthritis
     Dosage: FORM STRENGTH: 40 MILLIGRAM
     Route: 058
     Dates: start: 2014, end: 2017
  2. HUMIRA [Suspect]
     Active Substance: ADALIMUMAB
     Dosage: FORM STRENGTH: 40 MILLIGRAM
     Route: 058
     Dates: start: 202403

REACTIONS (3)
  - Colon cancer [Recovered/Resolved]
  - Wrong technique in product usage process [Not Recovered/Not Resolved]
  - Injection site discharge [Unknown]

NARRATIVE: CASE EVENT DATE: 20161231
